FAERS Safety Report 19108877 (Version 2)
Quarter: 2021Q4

REPORT INFORMATION
  Report Type: Spontaneous
  Country: GB (occurrence: GB)
  Receive Date: 20210408
  Receipt Date: 20211116
  Transmission Date: 20220303
  Serious: Yes (Life-Threatening, Other)
  Sender: FDA-Public Use
  Company Number: GB-SUN PHARMACEUTICAL INDUSTRIES LTD-2021R1-290329

PATIENT
  Age: 73 Year
  Sex: Male

DRUGS (4)
  1. LEVETIRACETAM [Suspect]
     Active Substance: LEVETIRACETAM
     Indication: Epilepsy
     Dosage: UNK
     Route: 065
  2. GLICLAZIDE [Concomitant]
     Active Substance: GLICLAZIDE
     Indication: Epilepsy
     Dosage: UNK
     Route: 065
  3. LOSARTAN [Concomitant]
     Active Substance: LOSARTAN
     Indication: Epilepsy
     Dosage: UNK
     Route: 065
  4. ASPIRIN [Concomitant]
     Active Substance: ASPIRIN
     Indication: Epilepsy
     Dosage: UNK
     Route: 065

REACTIONS (2)
  - Acute kidney injury [Recovered/Resolved]
  - Nephritis [Recovered/Resolved]
